FAERS Safety Report 8160089-3 (Version None)
Quarter: 2012Q1

REPORT INFORMATION
  Report Type: 
  Country: None (occurrence: None)
  Receive Date: 20120223
  Receipt Date: 20120216
  Transmission Date: 20120608
  Serious: No
  Sender: FDA-Public Use
  Company Number: US-PFIZER INC-2012045585

PATIENT
  Sex: Female
  Weight: 65.8 kg

DRUGS (2)
  1. NORGESTREL AND ETHINYL ESTRADIOL [Suspect]
  2. EFFEXOR [Concomitant]
     Indication: ANXIETY

REACTIONS (1)
  - METRORRHAGIA [None]
